FAERS Safety Report 8150391-3 (Version None)
Quarter: 2012Q1

REPORT INFORMATION
  Report Type: 
  Country: None (occurrence: None)
  Receive Date: 20120220
  Receipt Date: 20120213
  Transmission Date: 20120608
  Serious: Yes (Hospitalization, Other)
  Sender: FDA-Public Use
  Company Number: US-BAYER-2011-049715

PATIENT
  Age: 18 Year
  Sex: Female
  Weight: 81.814 kg

DRUGS (3)
  1. PRIMATENE MIST [Concomitant]
     Dosage: UNK
     Route: 055
     Dates: start: 20080605
  2. YAZ [Suspect]
     Indication: CONTRACEPTION
     Dosage: UNK
     Dates: start: 20080322, end: 20080605
  3. YAZ [Suspect]
     Indication: MENSTRUAL CYCLE MANAGEMENT

REACTIONS (11)
  - ANXIETY [None]
  - PULMONARY EMBOLISM [None]
  - CHEST PAIN [None]
  - GENERAL PHYSICAL HEALTH DETERIORATION [None]
  - FEAR OF DISEASE [None]
  - GALLBLADDER DISORDER [None]
  - DYSPNOEA [None]
  - PAIN [None]
  - EMOTIONAL DISTRESS [None]
  - DEEP VEIN THROMBOSIS [None]
  - INJURY [None]
